FAERS Safety Report 7170855-9 (Version None)
Quarter: 2010Q4

REPORT INFORMATION
  Report Type: 
  Country: None (occurrence: None)
  Receive Date: 20101206
  Receipt Date: 20101203
  Transmission Date: 20110411
  Serious: Yes (Hospitalization, Disabling)
  Sender: FDA-Public Use
  Company Number: OSCN-NO-1012S-0285

PATIENT
  Age: 57 Year
  Sex: Male

DRUGS (8)
  1. OMNISCAN [Suspect]
     Indication: CENTRAL NERVOUS SYSTEM ABSCESS
     Dosage: 15 ML, SINGLE DOSE, I.V.
     Route: 042
     Dates: start: 20060513, end: 20060513
  2. OMNISCAN [Suspect]
     Indication: CENTRAL NERVOUS SYSTEM ABSCESS
     Dosage: 15 ML, SINGLE DOSE, I.V.
     Route: 042
     Dates: start: 20060823, end: 20060823
  3. OMNISCAN [Suspect]
     Indication: CENTRAL NERVOUS SYSTEM ABSCESS
     Dosage: 15 ML, SINGLE DOSE, I.V.
     Route: 042
     Dates: start: 20060831, end: 20060831
  4. PROHANCE [Suspect]
     Dosage: 15 ML, SINGLE DOSE
     Dates: start: 20060817, end: 20060817
  5. PROHANCE [Suspect]
     Dosage: 15 ML, SINGLE DOSE
     Dates: start: 20060920, end: 20060920
  6. PROHANCE [Suspect]
     Dosage: 15 ML, SINGLE DOSE
     Dates: start: 20070110, end: 20070110
  7. PROHANCE [Suspect]
     Dosage: 15 ML, SINGLE DOSE
     Dates: start: 20070501, end: 20070501
  8. GADOLINUM (UNSPECIFIED) [Suspect]
     Dosage: NR, SINGLE DOSE
     Dates: start: 20070822, end: 20070822

REACTIONS (4)
  - BRAIN ABSCESS [None]
  - CONVULSION [None]
  - NECK PAIN [None]
  - NEPHROGENIC SYSTEMIC FIBROSIS [None]
